FAERS Safety Report 6599427-1 (Version None)
Quarter: 2010Q1

REPORT INFORMATION
  Report Type: 
  Country: None (occurrence: None)
  Receive Date: 20100224
  Receipt Date: 20100212
  Transmission Date: 20100710
  Serious: Yes (Other)
  Sender: FDA-Public Use
  Company Number: SE-PFIZER INC-2010018892

PATIENT
  Age: 67 Year
  Sex: Female

DRUGS (6)
  1. VFEND [Suspect]
     Indication: ASPERGILLOSIS
     Dosage: UNK
     Dates: start: 20081120, end: 20091109
  2. HEMOFER [Concomitant]
     Dosage: UNK
  3. OMEPRAZOL [Concomitant]
     Dosage: UNK
  4. NOVORAPID [Concomitant]
     Dosage: UNK
  5. CORTISONE [Concomitant]
     Dosage: UNK
  6. BACTRIM [Concomitant]
     Dosage: UNK

REACTIONS (2)
  - PULMONARY FIBROSIS [None]
  - RENAL FAILURE [None]
